FAERS Safety Report 5194432-4 (Version None)
Quarter: 2006Q4

REPORT INFORMATION
  Report Type: 
  Country: None (occurrence: None)
  Receive Date: 20061221
  Receipt Date: 20061214
  Transmission Date: 20070319
  Serious: Yes (Death, Hospitalization, Other)
  Sender: FDA-Public Use
  Company Number: HQWYE494124OCT06

PATIENT
  Sex: Male
  Weight: 101.42 kg

DRUGS (4)
  1. CORDARONE [Suspect]
     Dosage: UNSPECIFIED; ORAL
     Route: 048
     Dates: start: 20060601, end: 20060101
  2. CORDARONE [Suspect]
     Dosage: UNSPECIFIED; INTRAVENOUS
     Route: 042
     Dates: start: 20060601, end: 20060101
  3. VANCOMYCIN [Concomitant]
  4. FORTAZ [Concomitant]

REACTIONS (4)
  - ACUTE HEPATIC FAILURE [None]
  - HEPATIC FIBROSIS [None]
  - HEPATITIS [None]
  - RENAL FAILURE [None]
